FAERS Safety Report 6782928-0 (Version None)
Quarter: 2010Q2

REPORT INFORMATION
  Report Type: 
  Country: None (occurrence: None)
  Receive Date: 20100615
  Receipt Date: 20100602
  Transmission Date: 20101027
  Serious: Yes (Death, Other)
  Sender: FDA-Public Use
  Company Number: 7006818

PATIENT
  Age: 26 Year
  Sex: Female

DRUGS (2)
  1. MITOXANTRONE [Suspect]
     Indication: RELAPSING-REMITTING MULTIPLE SCLEROSIS
     Dosage: 12MG/M2, 1 IN 1M
     Dates: start: 20020101, end: 20030301
  2. GLATIRAMER ACETATE [Concomitant]

REACTIONS (4)
  - B PRECURSOR TYPE ACUTE LEUKAEMIA [None]
  - BRONCHOPULMONARY ASPERGILLOSIS [None]
  - HAEMATOMA [None]
  - HAEMOPTYSIS [None]
